FAERS Safety Report 4848964-6 (Version None)
Quarter: 2005Q4

REPORT INFORMATION
  Report Type: 
  Country: None (occurrence: None)
  Receive Date: 20051208
  Receipt Date: 19930604
  Transmission Date: 20060501
  Serious: Yes (Other)
  Sender: FDA-Public Use
  Company Number: US-MERCK-93060301

PATIENT
  Age: 67 Year
  Sex: Female

DRUGS (4)
  1. HYDRODIURIL [Suspect]
     Indication: HYPERTENSION
     Route: 048
  2. LEVOTHYROXINE SODIUM [Concomitant]
     Route: 065
  3. AMITRIPTYLINE [Concomitant]
     Route: 065
  4. CALCIUM METABOLISM REGULATOR [Concomitant]
     Route: 065

REACTIONS (3)
  - ERYTHEMA [None]
  - PNEUMONITIS [None]
  - SYSTEMIC LUPUS ERYTHEMATOSUS [None]
